FAERS Safety Report 14291068 (Version 2)
Quarter: 2018Q1

REPORT INFORMATION
  Report Type: Other
  Country: PT (occurrence: PT)
  Receive Date: 20171215
  Receipt Date: 20180116
  Transmission Date: 20180509
  Serious: Yes (Life-Threatening, Other)
  Sender: FDA-Public Use
  Company Number: PT-ASPEN-GLO2017PT008319

PATIENT
  Age: 23 Year
  Sex: Female

DRUGS (33)
  1. IBUPROFEN. [Suspect]
     Active Substance: IBUPROFEN
     Indication: URTICARIA CHRONIC
     Dosage: UNK
     Route: 065
  2. EBASTINE [Suspect]
     Active Substance: EBASTINE
     Route: 065
  3. METHYLPREDNISOLONE. [Suspect]
     Active Substance: METHYLPREDNISOLONE
     Indication: ASTHMA
     Dosage: UNK
     Route: 065
  4. DESLORATADINE. [Suspect]
     Active Substance: DESLORATADINE
     Indication: URTICARIA CHRONIC
     Dosage: UNK
     Route: 065
  5. LORATADINE. [Suspect]
     Active Substance: LORATADINE
     Indication: ASTHMA
     Dosage: UNK
     Route: 065
  6. CETIRIZINE [Suspect]
     Active Substance: CETIRIZINE HYDROCHLORIDE
     Indication: URTICARIA CHRONIC
     Dosage: UNK
     Route: 065
  7. ACETAMINOPHEN. [Suspect]
     Active Substance: ACETAMINOPHEN
     Indication: ASTHMA
     Dosage: UNK
     Route: 065
  8. LORATADINE. [Suspect]
     Active Substance: LORATADINE
     Indication: URTICARIA CHRONIC
     Dosage: UNK
     Route: 065
  9. DEFLAZACORTE [Suspect]
     Active Substance: DEFLAZACORT
     Indication: ASTHMA
     Dosage: UNK
     Route: 062
  10. EBASTINE [Suspect]
     Active Substance: EBASTINE
     Indication: URTICARIA CHRONIC
  11. OMALIZUMAB. [Suspect]
     Active Substance: OMALIZUMAB
     Indication: ANGIOEDEMA
     Dosage: UNK
     Route: 065
  12. MONTELUKAST [Suspect]
     Active Substance: MONTELUKAST SODIUM
     Indication: PRODUCT USED FOR UNKNOWN INDICATION
     Dosage: UNK
     Route: 048
  13. CLEMASTINE [Suspect]
     Active Substance: CLEMASTINE
     Indication: URTICARIA CHRONIC
  14. FLURBIPROFEN. [Suspect]
     Active Substance: FLURBIPROFEN
     Indication: URTICARIA CHRONIC
     Dosage: UNK
     Route: 065
  15. DESLORATADINE. [Suspect]
     Active Substance: DESLORATADINE
     Indication: ASTHMA
     Dosage: UNK
     Route: 048
  16. OMALIZUMAB. [Suspect]
     Active Substance: OMALIZUMAB
     Indication: ASTHMA
     Dosage: 150 MG
  17. CLEMASTINE [Suspect]
     Active Substance: CLEMASTINE
     Indication: ASTHMA
     Dosage: UNK
     Route: 065
  18. FLURBIPROFEN. [Suspect]
     Active Substance: FLURBIPROFEN
     Indication: ASTHMA
     Dosage: UNK
     Route: 065
  19. PARACETAMOL [Suspect]
     Active Substance: ACETAMINOPHEN
     Indication: URTICARIA CHRONIC
     Dosage: UNK
     Route: 065
  20. METHYLPREDNISOLONE. [Suspect]
     Active Substance: METHYLPREDNISOLONE
     Indication: URTICARIA CHRONIC
     Dosage: UNK
     Route: 062
  21. HYDROCORTISONE. [Suspect]
     Active Substance: HYDROCORTISONE
     Indication: ASTHMA
     Dosage: UNK
     Route: 065
  22. ACETAMINOPHEN. [Suspect]
     Active Substance: ACETAMINOPHEN
     Indication: URTICARIA CHRONIC
  23. EBASTINE [Suspect]
     Active Substance: EBASTINE
     Indication: URTICARIA CHRONIC
  24. PARACETAMOL [Suspect]
     Active Substance: ACETAMINOPHEN
     Indication: ASTHMA
     Dosage: UNK
     Route: 065
  25. DEFLAZACORTE [Suspect]
     Active Substance: DEFLAZACORT
     Indication: URTICARIA CHRONIC
     Dosage: UNK
     Route: 065
  26. CETIRIZINE [Suspect]
     Active Substance: CETIRIZINE HYDROCHLORIDE
     Indication: ASTHMA
     Dosage: UNK
     Route: 065
  27. OMALIZUMAB. [Suspect]
     Active Substance: OMALIZUMAB
     Indication: URTICARIA CHRONIC
     Dosage: 300 MG
     Route: 065
  28. HYDROXYZINE [Suspect]
     Active Substance: HYDROXYZINE HYDROCHLORIDE
     Indication: ASTHMA
     Dosage: UNK
     Route: 065
  29. EBASTINE [Suspect]
     Active Substance: EBASTINE
     Indication: ASTHMA
  30. DEXAMETHASONE. [Suspect]
     Active Substance: DEXAMETHASONE
     Indication: PRODUCT USED FOR UNKNOWN INDICATION
     Route: 065
  31. DEXAMETHASONE. [Suspect]
     Active Substance: DEXAMETHASONE
     Route: 065
  32. IBUPROFEN. [Suspect]
     Active Substance: IBUPROFEN
     Indication: ASTHMA
     Dosage: UNK
     Route: 065
  33. HYDROCORTISONE. [Suspect]
     Active Substance: HYDROCORTISONE
     Indication: URTICARIA CHRONIC
     Dosage: UNK
     Route: 062

REACTIONS (6)
  - Urticaria [Recovering/Resolving]
  - Allergy test positive [Unknown]
  - Drug hypersensitivity [Unknown]
  - Angioedema [Recovering/Resolving]
  - Maternal exposure during pregnancy [Unknown]
  - Product use in unapproved indication [Unknown]
